FAERS Safety Report 6142041-2 (Version None)
Quarter: 2009Q1

REPORT INFORMATION
  Report Type: 
  Country: None (occurrence: None)
  Receive Date: 20090331
  Receipt Date: 20090331
  Transmission Date: 20090719
  Serious: Yes (Other)
  Sender: FDA-Public Use
  Company Number: None

PATIENT
  Age: 42 Year
  Sex: Male
  Weight: 75.7507 kg

DRUGS (1)
  1. LIPITOR [Suspect]
     Indication: BLOOD CHOLESTEROL INCREASED
     Dates: start: 20070209, end: 20070828

REACTIONS (4)
  - DYSKINESIA [None]
  - FACIAL PAIN [None]
  - MEMORY IMPAIRMENT [None]
  - MYALGIA [None]
